FAERS Safety Report 24702653 (Version 1)
Quarter: 2024Q4

REPORT INFORMATION
  Report Type: Spontaneous
  Country: US (occurrence: US)
  Receive Date: 20241205
  Receipt Date: 20241205
  Transmission Date: 20250115
  Serious: Yes (Other)
  Sender: PHARMING GROUP
  Company Number: US-PHARMING-PHAUS2024001147

PATIENT

DRUGS (6)
  1. RUCONEST [Suspect]
     Active Substance: CONESTAT ALFA
     Indication: Hereditary angioedema
     Dosage: 3100 IU, PRN
     Route: 042
     Dates: start: 202307
  2. RUCONEST [Suspect]
     Active Substance: CONESTAT ALFA
     Dosage: 3100 IU, PRN
     Route: 042
  3. BENLYSTA [Concomitant]
     Active Substance: BELIMUMAB
     Indication: Product used for unknown indication
  4. DUPIXENT [Concomitant]
     Active Substance: DUPILUMAB
     Indication: Dermatitis atopic
  5. DUPIXENT [Concomitant]
     Active Substance: DUPILUMAB
     Indication: Idiopathic urticaria
  6. TAKHZYO [Concomitant]
     Indication: Product used for unknown indication

REACTIONS (1)
  - Adrenal insufficiency [Unknown]
